FAERS Safety Report 16849576 (Version 1)
Quarter: 2019Q3

REPORT INFORMATION
  Report Type: Spontaneous
  Country: GB (occurrence: GB)
  Receive Date: 20190925
  Receipt Date: 20190925
  Transmission Date: 20191005
  Serious: Yes (Life-Threatening, Hospitalization, Disabling)
  Sender: FDA-Public Use
  Company Number: GB-ACCORD-155544

PATIENT
  Age: 76 Year
  Sex: Male

DRUGS (6)
  1. ITRACONAZOLE. [Suspect]
     Active Substance: ITRACONAZOLE
     Indication: ONYCHOMYCOSIS
  2. ROPINIROLE/ROPINIROLE HYDROCHLORIDE [Concomitant]
  3. SIMVASTATIN. [Interacting]
     Active Substance: SIMVASTATIN
     Indication: PRODUCT USED FOR UNKNOWN INDICATION
     Dosage: AT NIGHT
     Route: 048
  4. RANITIDINE. [Concomitant]
     Active Substance: RANITIDINE
  5. LOSARTAN. [Concomitant]
     Active Substance: LOSARTAN
  6. SINEMET [Concomitant]
     Active Substance: CARBIDOPA\LEVODOPA

REACTIONS (3)
  - Acute kidney injury [Unknown]
  - Rhabdomyolysis [Unknown]
  - Drug interaction [Unknown]

NARRATIVE: CASE EVENT DATE: 20190802
